FAERS Safety Report 22335458 (Version 1)
Quarter: 2023Q2

REPORT INFORMATION
  Report Type: Other
  Country: CA (occurrence: CA)
  Receive Date: 20230518
  Receipt Date: 20230518
  Transmission Date: 20230722
  Serious: Yes (Hospitalization)
  Sender: FDA-Public Use
  Company Number: CA-CELLTRION INC.-2023CA010145

PATIENT

DRUGS (8)
  1. RITUXIMAB [Suspect]
     Active Substance: RITUXIMAB
     Indication: Rheumatoid arthritis
     Dosage: 1000 MILLIGRAM
     Route: 042
  2. RITUXIMAB [Suspect]
     Active Substance: RITUXIMAB
     Dosage: 1 GRAM
     Route: 042
  3. RITUXIMAB [Suspect]
     Active Substance: RITUXIMAB
     Dosage: 1000 MILLIGRAM
     Route: 042
  4. RITUXIMAB [Suspect]
     Active Substance: RITUXIMAB
     Dosage: 1000 MILLIGRAM
     Route: 042
  5. ACETAMINOPHEN [Concomitant]
     Active Substance: ACETAMINOPHEN
     Route: 048
  6. DIPHENHYDRAMINE HYDROCHLORIDE [Concomitant]
     Active Substance: DIPHENHYDRAMINE HYDROCHLORIDE
     Route: 065
  7. METHYLPREDNISOLONE [Concomitant]
     Active Substance: METHYLPREDNISOLONE
     Route: 042
  8. PREDNISONE [Concomitant]
     Active Substance: PREDNISONE
     Route: 065

REACTIONS (11)
  - Joint range of motion decreased [Recovered/Resolved]
  - Joint swelling [Recovered/Resolved]
  - Arthralgia [Recovered/Resolved]
  - COVID-19 [Recovered/Resolved]
  - Dizziness [Recovered/Resolved]
  - Dyspnoea [Recovered/Resolved]
  - Fatigue [Recovered/Resolved]
  - Headache [Recovered/Resolved]
  - Nausea [Recovered/Resolved]
  - Throat irritation [Recovered/Resolved]
  - Drug ineffective [Recovered/Resolved]
